FAERS Safety Report 14608619 (Version 1)
Quarter: 2018Q1

REPORT INFORMATION
  Report Type: Spontaneous
  Country: GB (occurrence: FR)
  Receive Date: 20180307
  Receipt Date: 20180307
  Transmission Date: 20180509
  Serious: Yes (Life-Threatening)
  Sender: FDA-Public Use
  Company Number: GB-BAYER-2018-042923

PATIENT
  Age: 42 Year
  Sex: Male
  Weight: 92 kg

DRUGS (12)
  1. PROMETHAZINE [Suspect]
     Active Substance: PROMETHAZINE\PROMETHAZINE HYDROCHLORIDE
     Dosage: UNK
     Route: 048
  2. TRANXENE [Suspect]
     Active Substance: CLORAZEPATE DIPOTASSIUM
     Dosage: UNK
     Route: 048
  3. LOXAPAC [Suspect]
     Active Substance: LOXAPINE
     Indication: SCHIZOPHRENIA
     Dosage: UNK
     Route: 048
  4. ARAVA [Suspect]
     Active Substance: LEFLUNOMIDE
     Indication: PALINDROMIC RHEUMATISM
     Dosage: UNK
     Route: 048
  5. SERESTA [Suspect]
     Active Substance: OXAZEPAM
     Dosage: UNK
     Route: 048
  6. PARKINANE [Suspect]
     Active Substance: TRIHEXYPHENIDYL HYDROCHLORIDE
     Indication: PARKINSONISM
     Dosage: UNK
     Route: 048
  7. ZOPICLONE [Suspect]
     Active Substance: ZOPICLONE
     Dosage: UNK
     Route: 048
  8. ABILIFY [Suspect]
     Active Substance: ARIPIPRAZOLE
     Indication: SCHIZOPHRENIA
     Route: 048
  9. THERALENE [Suspect]
     Active Substance: TRIMEPRAZINE
     Indication: INSOMNIA
     Dosage: UNK
     Route: 048
  10. ALPRAZOLAM. [Suspect]
     Active Substance: ALPRAZOLAM
     Dosage: UNK
     Route: 048
  11. ASPIRINE 500 MG [Suspect]
     Active Substance: ASPIRIN
     Dosage: UNK
     Route: 048
  12. VENLAFAXINE [Suspect]
     Active Substance: VENLAFAXINE HYDROCHLORIDE
     Indication: DEPRESSION
     Dosage: UNK
     Route: 048

REACTIONS (5)
  - Metabolic acidosis [Recovered/Resolved]
  - Acute respiratory distress syndrome [Recovered/Resolved]
  - Prothrombin level decreased [Recovered/Resolved]
  - Coma [Recovered/Resolved]
  - Pancytopenia [Recovered/Resolved]

NARRATIVE: CASE EVENT DATE: 20170608
